FAERS Safety Report 26092721 (Version 1)
Quarter: 2025Q4

REPORT INFORMATION
  Report Type: Spontaneous
  Country: US (occurrence: US)
  Receive Date: 20251126
  Receipt Date: 20251126
  Transmission Date: 20260117
  Serious: Yes (Hospitalization)
  Sender: MERCK SHARP & DOHME LLC
  Company Number: US-009507513-2352555

PATIENT
  Sex: Female

DRUGS (2)
  1. DIFICID [Suspect]
     Active Substance: FIDAXOMICIN
     Indication: Clostridium difficile infection
     Route: 048
  2. VANCOMYCIN [Suspect]
     Active Substance: VANCOMYCIN
     Indication: Clostridium difficile infection

REACTIONS (4)
  - Clostridium difficile infection [Unknown]
  - Probiotic therapy [Unknown]
  - Streptococcal infection [Unknown]
  - Asthenia [Unknown]

NARRATIVE: CASE EVENT DATE: 20241001
